FAERS Safety Report 4678373-4 (Version None)
Quarter: 2005Q2

REPORT INFORMATION
  Report Type: 
  Country: None (occurrence: None)
  Receive Date: 20050531
  Receipt Date: 20050531
  Transmission Date: 20051028
  Serious: Yes (Hospitalization)
  Sender: FDA-Public Use
  Company Number: None

PATIENT
  Age: 54 Year
  Sex: Female
  Weight: 53.6 kg

DRUGS (2)
  1. PLATINOL [Suspect]
     Indication: ANAL CANCER
     Dosage: 59 MG DAY Q 28 DAYS INTRAVENOU
     Route: 042
     Dates: start: 20050523, end: 20050523
  2. FLUOROURACIL [Suspect]
     Dosage: 6280 DAY 1-4Q 28 D INTRAVENOU
     Route: 042
     Dates: start: 20050523, end: 20050527

REACTIONS (3)
  - NAUSEA [None]
  - VOMITING [None]
  - WEIGHT DECREASED [None]
